FAERS Safety Report 9743156 (Version 2)
Quarter: 2015Q3

REPORT INFORMATION
  Report Type: Spontaneous
  Country: US (occurrence: US)
  Receive Date: 20131210
  Receipt Date: 20150804
  Transmission Date: 20151125
  Serious: No
  Sender: FDA-Public Use
  Company Number: US-GILEAD-2009-0024374

PATIENT
  Age: 47 Year
  Sex: Female
  Weight: 72.57 kg

DRUGS (9)
  1. LETAIRIS [Suspect]
     Active Substance: AMBRISENTAN
     Indication: PULMONARY ARTERIAL HYPERTENSION
     Route: 048
     Dates: start: 20090902
  2. COUMADIN [Concomitant]
     Active Substance: WARFARIN SODIUM
  3. MSIR [Concomitant]
     Active Substance: MORPHINE SULFATE
  4. AMITRIPTYLIN [Concomitant]
     Active Substance: AMITRIPTYLINE
  5. MS CONTIN [Concomitant]
     Active Substance: MORPHINE SULFATE
  6. NORVASC [Concomitant]
     Active Substance: AMLODIPINE BESYLATE
  7. CLONAZEPAM. [Concomitant]
     Active Substance: CLONAZEPAM
  8. OXYGEN. [Concomitant]
     Active Substance: OXYGEN
  9. ATENOLOL. [Concomitant]
     Active Substance: ATENOLOL

REACTIONS (1)
  - Palpitations [Unknown]
